FAERS Safety Report 6981316-1 (Version None)
Quarter: 2010Q3

REPORT INFORMATION
  Report Type: 
  Country: None (occurrence: None)
  Receive Date: 20100909
  Receipt Date: 20100825
  Transmission Date: 20110219
  Serious: Yes (Hospitalization, Other)
  Sender: FDA-Public Use
  Company Number: 018261

PATIENT
  Sex: Female
  Weight: 87.5 kg

DRUGS (10)
  1. CIMZIA [Suspect]
     Indication: CROHN'S DISEASE
     Dosage: (400 MG 1X/MONTH SUBCUTANEOUS)
     Route: 058
     Dates: start: 20090801
  2. NEXIUM /01479303/ [Concomitant]
  3. ZOFRAN [Concomitant]
  4. VITAMIN A [Concomitant]
  5. KLONOPIN [Concomitant]
  6. ZANAFLEX [Concomitant]
  7. CYMBALTA [Concomitant]
  8. FOLIC ACID [Concomitant]
  9. HYDROCHLOROTHIAZIDE [Concomitant]
  10. PERCOCET [Concomitant]

REACTIONS (5)
  - CONDITION AGGRAVATED [None]
  - CROHN'S DISEASE [None]
  - ILEITIS [None]
  - INTESTINAL CONGESTION [None]
  - MUCOSAL ULCERATION [None]
